FAERS Safety Report 11432907 (Version 2)
Quarter: 2015Q3

REPORT INFORMATION
  Report Type: Spontaneous
  Country: IT (occurrence: IT)
  Receive Date: 20150828
  Receipt Date: 20150904
  Transmission Date: 20151125
  Serious: Yes (Life-Threatening, Hospitalization)
  Sender: FDA-Public Use
  Company Number: IT-ASTRAZENECA-2015SE83082

PATIENT
  Age: 26434 Day
  Sex: Female

DRUGS (6)
  1. CYMBALTA [Concomitant]
     Active Substance: DULOXETINE HYDROCHLORIDE
  2. TRIATEC [Concomitant]
     Active Substance: RAMIPRIL
  3. PRISMA [Concomitant]
  4. SEROQUEL [Suspect]
     Active Substance: QUETIAPINE FUMARATE
     Indication: DRUG ABUSE
     Route: 048
     Dates: start: 20150628, end: 20150628
  5. EUTIROX [Concomitant]
     Active Substance: LEVOTHYROXINE SODIUM
  6. LYRICA [Suspect]
     Active Substance: PREGABALIN
     Route: 048
     Dates: start: 20150628, end: 20150628

REACTIONS (5)
  - Left ventricular failure [Unknown]
  - Major depression [Unknown]
  - Sopor [Unknown]
  - Oxygen saturation decreased [Unknown]
  - Intentional self-injury [Unknown]

NARRATIVE: CASE EVENT DATE: 20150628
